FAERS Safety Report 4409503-7 (Version None)
Quarter: 2004Q3

REPORT INFORMATION
  Report Type: 
  Country: None (occurrence: None)
  Receive Date: 20040727
  Receipt Date: 20040727
  Transmission Date: 20050211
  Serious: Yes (Hospitalization)
  Sender: FDA-Public Use
  Company Number: None

PATIENT
  Age: 42 Year
  Sex: Male
  Weight: 77.5 kg

DRUGS (10)
  1. HEPARIN [Suspect]
     Indication: ANTICOAGULANT THERAPY
     Dosage: 1000 UNITS/HR DRIP
     Dates: start: 20040220, end: 20040222
  2. HEPARIN [Suspect]
     Indication: ANTICOAGULANT THERAPY
     Dosage: 8000 UNITS IN CATHETER
     Dates: end: 20040219
  3. ASPIRIN [Concomitant]
  4. INSULIN [Concomitant]
  5. METHADONE HCL [Concomitant]
  6. AMIODARONE HCL [Concomitant]
  7. NITROGLYCERIN [Concomitant]
  8. ANCEF [Concomitant]
  9. ZESTRIL [Concomitant]
  10. OMNIPAQUE 240 [Concomitant]

REACTIONS (2)
  - HEPARIN-INDUCED THROMBOCYTOPENIA [None]
  - IDIOPATHIC THROMBOCYTOPENIC PURPURA [None]
